FAERS Safety Report 4655928-4 (Version None)
Quarter: 2005Q2

REPORT INFORMATION
  Report Type: 
  Country: None (occurrence: None)
  Receive Date: 20050506
  Receipt Date: 20050506
  Transmission Date: 20051028
  Serious: No
  Sender: FDA-Public Use
  Company Number: None

PATIENT
  Age: 54 Year
  Sex: Female
  Weight: 120 kg

DRUGS (1)
  1. DEMECLOMYCIN  300 MG  WYETH [Suspect]
     Indication: INAPPROPRIATE ANTIDIURETIC HORMONE SECRETION
     Dosage: 300MG   TWICE A DAY   OTHER
     Route: 050
     Dates: start: 20050319, end: 20050331

REACTIONS (1)
  - LIVER FUNCTION TEST ABNORMAL [None]
